FAERS Safety Report 9094014 (Version 1)
Quarter: 2013Q1

REPORT INFORMATION
  Report Type: Report from Study
  Country: US (occurrence: US)
  Receive Date: 20130131
  Receipt Date: 20130131
  Transmission Date: 20140127
  Serious: No
  Sender: FDA-Public Use
  Company Number: US-ABBOTT-12P-163-1007510-00

PATIENT
  Age: 33 Year
  Sex: Female

DRUGS (4)
  1. HUMIRA [Suspect]
     Dates: start: 20121026
  2. HUMIRA [Suspect]
     Dosage: 2ND INJECTION OF LOADING DOSE
     Dates: start: 20121109
  3. BIRTH CONTROL [Concomitant]
     Indication: PRODUCT USED FOR UNKNOWN INDICATION
  4. LIALDA [Concomitant]
     Indication: PRODUCT USED FOR UNKNOWN INDICATION
     Dosage: UNTIL HUMIRA KICKS IN

REACTIONS (2)
  - Injection site pain [Recovering/Resolving]
  - Injection site reaction [Recovering/Resolving]
